FAERS Safety Report 22126361 (Version 2)
Quarter: 2023Q1

REPORT INFORMATION
  Report Type: Spontaneous
  Country: US (occurrence: US)
  Receive Date: 20230322
  Receipt Date: 20230322
  Transmission Date: 20230417
  Serious: No
  Sender: FDA-Public Use
  Company Number: US-ALLERGAN-2301015US

PATIENT
  Sex: Female
  Weight: 56.699 kg

DRUGS (2)
  1. LATISSE [Suspect]
     Active Substance: BIMATOPROST
     Indication: Growth of eyelashes
     Dosage: 1 DROP PER APPLICATOR AND 1 APPLICATOR PER EYE
  2. LATISSE [Suspect]
     Active Substance: BIMATOPROST
     Indication: Growth of eyelashes
     Dosage: 1 DROP PER APPLICATOR AND 1 APPLICATOR PER EYE
     Dates: start: 202212, end: 20230111

REACTIONS (2)
  - Erythema of eyelid [Recovered/Resolved]
  - Drug ineffective [Unknown]
